FAERS Safety Report 4368395-5 (Version None)
Quarter: 2004Q2

REPORT INFORMATION
  Report Type: 
  Country: None (occurrence: None)
  Receive Date: 20040602
  Receipt Date: 20040311
  Transmission Date: 20050107
  Serious: Yes (Hospitalization, Disabling)
  Sender: FDA-Public Use
  Company Number: AU-GLAXOSMITHKLINE-B0300054B

PATIENT
  Age: 78 Year
  Sex: Male
  Weight: 50 kg

DRUGS (9)
  1. SALMETEROL/FLUTICASONE PROPIONATE 50/500UG [Suspect]
     Route: 055
     Dates: start: 20010911
  2. VENTOLIN [Concomitant]
     Dosage: 100MCG AS REQUIRED
     Route: 055
     Dates: end: 20040310
  3. ATROVENT [Concomitant]
     Dosage: .5ML AS REQUIRED
     Route: 055
  4. SPIRIVA [Concomitant]
     Dosage: 18MCG PER DAY
     Route: 055
     Dates: start: 20030301
  5. NEO-MERCAZOLE TAB [Concomitant]
     Indication: HYPERTHYROIDISM
     Dosage: 15MG PER DAY
     Route: 048
     Dates: start: 20040216, end: 20040312
  6. ZOLOFT [Concomitant]
     Indication: DEPRESSION
     Dosage: 25MG PER DAY
     Route: 048
     Dates: end: 20040322
  7. VITAMIN E [Concomitant]
     Indication: NUTRITIONAL SUPPORT
     Route: 048
  8. METOPROLOL TARTRATE [Concomitant]
     Indication: ATRIAL FLUTTER
     Dosage: 75MG PER DAY
     Dates: start: 20040309
  9. CARBIMAZOLE [Concomitant]

REACTIONS (6)
  - ATRIAL FLUTTER [None]
  - DIARRHOEA [None]
  - HYPERTHYROIDISM [None]
  - NAUSEA [None]
  - SINUS TACHYCARDIA [None]
  - VOMITING [None]
